FAERS Safety Report 7332940-8 (Version None)
Quarter: 2011Q1

REPORT INFORMATION
  Report Type: 
  Country: None (occurrence: None)
  Receive Date: 20110304
  Receipt Date: 20110228
  Transmission Date: 20110831
  Serious: Yes (Hospitalization, Other)
  Sender: FDA-Public Use
  Company Number: US-PFIZER INC-2005107304

PATIENT
  Sex: Female

DRUGS (1)
  1. GABAPENTIN [Suspect]
     Indication: BIPOLAR DISORDER
     Dosage: 200 MG, 2 TWO TIMES A DAY
     Route: 065
     Dates: start: 20000531

REACTIONS (4)
  - SUICIDAL IDEATION [None]
  - INTENTIONAL OVERDOSE [None]
  - DRUG INEFFECTIVE [None]
  - SUICIDE ATTEMPT [None]
